FAERS Safety Report 23166633 (Version 1)
Quarter: 2023Q4

REPORT INFORMATION
  Report Type: Spontaneous
  Country: CN (occurrence: None)
  Receive Date: 20231109
  Receipt Date: 20231109
  Transmission Date: 20240110
  Serious: Yes (Other)
  Sender: FDA-Public Use
  Company Number: 2023A253622

PATIENT
  Age: 32 Year
  Sex: Male
  Weight: 77 kg

DRUGS (3)
  1. DAPAGLIFLOZIN [Suspect]
     Active Substance: DAPAGLIFLOZIN
     Indication: Type 2 diabetes mellitus
     Route: 048
     Dates: start: 20231024, end: 20231026
  2. SAXAGLIPTIN [Suspect]
     Active Substance: SAXAGLIPTIN
     Indication: Type 2 diabetes mellitus
     Route: 048
     Dates: start: 20231024, end: 20231026
  3. METFORMIN HYDROCHLORIDE [Suspect]
     Active Substance: METFORMIN HYDROCHLORIDE
     Indication: Type 2 diabetes mellitus
     Dosage: 0.50 TABLET THREE TIMES EVERY ONE DAY
     Route: 048
     Dates: start: 20231024, end: 20231026

REACTIONS (3)
  - Rash erythematous [Recovering/Resolving]
  - Drug eruption [Unknown]
  - Rash pruritic [Unknown]

NARRATIVE: CASE EVENT DATE: 20231025
